FAERS Safety Report 18688658 (Version 1)
Quarter: 2020Q4

REPORT INFORMATION
  Report Type: Spontaneous
  Country: US (occurrence: US)
  Receive Date: 20201231
  Receipt Date: 20201231
  Transmission Date: 20210114
  Serious: Yes (Life-Threatening)
  Sender: FDA-Public Use
  Company Number: None

PATIENT
  Age: 74 Year
  Sex: Male

DRUGS (8)
  1. ENALAPRIL 20MG [Concomitant]
     Active Substance: ENALAPRIL
  2. ALPRAZOLAM 0.5MG [Concomitant]
     Active Substance: ALPRAZOLAM
  3. LENVIMA [Suspect]
     Active Substance: LENVATINIB
     Indication: HEPATOCELLULAR CARCINOMA
     Route: 048
     Dates: start: 20191227, end: 20201230
  4. METFORMIN 500MG [Concomitant]
     Active Substance: METFORMIN HYDROCHLORIDE
  5. ATORVASTATIN 20MG [Concomitant]
     Active Substance: ATORVASTATIN
  6. JANUVIA [Concomitant]
     Active Substance: SITAGLIPTIN PHOSPHATE
  7. GLYBURIDE 5MG [Concomitant]
  8. HYDROCHLOROTHIAZIDE 25MG [Concomitant]
     Active Substance: HYDROCHLOROTHIAZIDE

REACTIONS (2)
  - Extra dose administered [None]
  - Blood glucose decreased [None]

NARRATIVE: CASE EVENT DATE: 20201227
